FAERS Safety Report 6091401-7 (Version None)
Quarter: 2009Q1

REPORT INFORMATION
  Report Type: 
  Country: None (occurrence: None)
  Receive Date: 20090225
  Receipt Date: 20081223
  Transmission Date: 20090719
  Serious: No
  Sender: FDA-Public Use
  Company Number: A0761768A

PATIENT
  Age: 74 Year
  Sex: Female

DRUGS (1)
  1. VERAMYST [Suspect]
     Route: 045

REACTIONS (1)
  - NASAL ULCER [None]
